FAERS Safety Report 18836612 (Version 3)
Quarter: 2023Q1

REPORT INFORMATION
  Report Type: Spontaneous
  Country: US (occurrence: US)
  Receive Date: 20210203
  Receipt Date: 20230323
  Transmission Date: 20230418
  Serious: Yes (Hospitalization)
  Sender: FDA-Public Use
  Company Number: US-PFIZER INC-2021100253

PATIENT
  Age: 47 Year
  Sex: Male

DRUGS (3)
  1. BRAFTOVI [Suspect]
     Active Substance: ENCORAFENIB
     Dosage: 75 MG
  2. BRAFTOVI [Suspect]
     Active Substance: ENCORAFENIB
     Dosage: 450 MG
  3. MEKTOVI [Suspect]
     Active Substance: BINIMETINIB
     Dosage: 15 MG

REACTIONS (2)
  - Illness [Unknown]
  - Product prescribing error [Unknown]
